FAERS Safety Report 7650818-7 (Version None)
Quarter: 2011Q3

REPORT INFORMATION
  Report Type: 
  Country: None (occurrence: None)
  Receive Date: 20110802
  Receipt Date: 20110725
  Transmission Date: 20111222
  Serious: Yes (Death, Hospitalization)
  Sender: FDA-Public Use
  Company Number: IT-BAYER-2011-064591

PATIENT
  Age: 95 Year
  Sex: Female

DRUGS (3)
  1. CIPROFLOXACIN [Suspect]
     Indication: HYPERPYREXIA
     Dosage: DAILY DOSE 500 MG
     Route: 048
     Dates: start: 20110701, end: 20110705
  2. CEFTRIAXONE SODIUM [Suspect]
     Indication: HYPERPYREXIA
     Dosage: DAILY DOSE 4 G
     Route: 042
     Dates: start: 20110630, end: 20110705
  3. BACTRIM [Suspect]
     Indication: HYPERPYREXIA
     Dosage: UNK
     Route: 048
     Dates: start: 20110625, end: 20110701

REACTIONS (3)
  - FEBRILE BONE MARROW APLASIA [None]
  - HYPERPYREXIA [None]
  - SEPSIS [None]
